FAERS Safety Report 14207102 (Version 3)
Quarter: 2019Q4

REPORT INFORMATION
  Report Type: Report from Study
  Country: CA (occurrence: CA)
  Receive Date: 20171121
  Receipt Date: 20191223
  Transmission Date: 20200122
  Serious: Yes (Hospitalization, Other)
  Sender: FDA-Public Use
  Company Number: CA-ROCHE-1741032

PATIENT
  Age: 46 Year
  Sex: Male

DRUGS (12)
  1. RITUXAN [Suspect]
     Active Substance: RITUXIMAB
     Indication: GRANULOMATOSIS WITH POLYANGIITIS
     Route: 042
     Dates: start: 20150708, end: 20150730
  2. RITUXAN [Suspect]
     Active Substance: RITUXIMAB
     Indication: PULMONARY RENAL SYNDROME
     Dosage: SINGLE RETREATMENT
     Route: 042
     Dates: start: 20160517, end: 20160517
  3. RITUXAN [Suspect]
     Active Substance: RITUXIMAB
     Dosage: SINGLE RETREATMENT
     Route: 042
     Dates: start: 20170417, end: 20170417
  4. ACETAMINOPHEN. [Concomitant]
     Active Substance: ACETAMINOPHEN
     Route: 048
     Dates: start: 20150708, end: 20150730
  5. ACETAMINOPHEN. [Concomitant]
     Active Substance: ACETAMINOPHEN
     Route: 048
     Dates: start: 20160517
  6. RITUXAN [Suspect]
     Active Substance: RITUXIMAB
     Dosage: SINGLE RETREATMENT
     Route: 042
     Dates: start: 20161025, end: 20161025
  7. DIPHENHYDRAMINE HCL [Concomitant]
     Active Substance: DIPHENHYDRAMINE HYDROCHLORIDE
     Route: 048
     Dates: start: 20150708
  8. RITUXAN [Suspect]
     Active Substance: RITUXIMAB
     Dosage: SINGLE RETREATMENT
     Route: 042
     Dates: start: 20171108, end: 20171108
  9. PREDNISONE. [Concomitant]
     Active Substance: PREDNISONE
  10. METHYLPREDNISOLONE. [Concomitant]
     Active Substance: METHYLPREDNISOLONE
     Route: 042
     Dates: start: 20150708
  11. RITUXAN [Suspect]
     Active Substance: RITUXIMAB
     Dosage: SINGLE RETREATMENT
     Route: 042
     Dates: start: 20190227, end: 20190227
  12. INDAPAMIDE;PERINDOPRIL [Concomitant]
     Indication: BLOOD PRESSURE MEASUREMENT

REACTIONS (16)
  - Hypertension [Unknown]
  - Musculoskeletal pain [Not Recovered/Not Resolved]
  - Off label use [Unknown]
  - Lung abscess [Not Recovered/Not Resolved]
  - Malaise [Not Recovered/Not Resolved]
  - Heart rate increased [Unknown]
  - Blood pressure increased [Unknown]
  - Haemoptysis [Unknown]
  - Dyspnoea [Unknown]
  - Intentional product use issue [Unknown]
  - Cough [Not Recovered/Not Resolved]
  - Sinus congestion [Not Recovered/Not Resolved]
  - Oxygen saturation decreased [Unknown]
  - Granulomatosis with polyangiitis [Unknown]
  - Granuloma [Not Recovered/Not Resolved]
  - Pain [Not Recovered/Not Resolved]

NARRATIVE: CASE EVENT DATE: 2016
